FAERS Safety Report 5481503-8 (Version None)
Quarter: 2007Q4

REPORT INFORMATION
  Report Type: 
  Country: None (occurrence: None)
  Receive Date: 20071010
  Receipt Date: 20071001
  Transmission Date: 20080405
  Serious: Yes (Other)
  Sender: FDA-Public Use
  Company Number: US-ASTRAZENECA-2007AC01898

PATIENT
  Age: 60 Year
  Sex: Female

DRUGS (4)
  1. TAMOXIFEN CITRATE [Suspect]
     Indication: HORMONE THERAPY
     Route: 048
  2. DOXORUBICIN HCL [Concomitant]
     Indication: BREAST CANCER STAGE II
     Dosage: 4 CYCLES (108.6 MG)
  3. CYCLOPHOSPHAMIDE [Concomitant]
     Indication: BREAST CANCER STAGE II
     Dosage: 4 CYCLES (1086 MG)
  4. DOCETAXEL [Concomitant]
     Indication: BREAST CANCER STAGE II
     Dosage: 4 CYCLES (178 MG)
     Route: 042

REACTIONS (2)
  - COGNITIVE DISORDER [None]
  - NUCLEAR MAGNETIC RESONANCE IMAGING BRAIN ABNORMAL [None]
